FAERS Safety Report 16391916 (Version 2)
Quarter: 2019Q2

REPORT INFORMATION
  Report Type: Report from Study
  Country: IL (occurrence: IL)
  Receive Date: 20190605
  Receipt Date: 20190619
  Transmission Date: 20190711
  Serious: Yes (Hospitalization)
  Sender: FDA-Public Use
  Company Number: IL-IPSEN BIOPHARMACEUTICALS, INC.-2019-09189

PATIENT
  Age: 59 Year
  Sex: Male

DRUGS (8)
  1. CALCIMORE [Concomitant]
     Dosage: ONE TABLET TWICE A DAY, BETWEEN MEALS
  2. SOMATULINE AUTOGEL 120MG [Suspect]
     Active Substance: LANREOTIDE ACETATE
     Indication: NEUROENDOCRINE TUMOUR
     Dosage: 120 MG
     Route: 058
     Dates: start: 20190403, end: 201905
  3. LAXADIN [Concomitant]
     Active Substance: BISACODYL
  4. CLONEX [Concomitant]
  5. CLEXANE [Concomitant]
     Active Substance: ENOXAPARIN SODIUM
     Dosage: IN THE PRESENCE OF A PROGRESSIVE TUMOR DISEASE AND REDUCED MOBILITY; PREVENTIVE DOSAGE
     Route: 058
  6. RISPERDAL [Concomitant]
     Active Substance: RISPERIDONE
  7. DUROGESIC [Concomitant]
     Active Substance: FENTANYL
     Dosage: ANALGESIC PATCH
     Route: 062
  8. ABSTRAL [Concomitant]
     Active Substance: FENTANYL CITRATE
     Indication: PAIN
     Dosage: AS REQUIRED FOR PAIN.
     Route: 060

REACTIONS (1)
  - Blood calcium increased [Recovered/Resolved]

NARRATIVE: CASE EVENT DATE: 201904
